FAERS Safety Report 8421833-0 (Version None)
Quarter: 2012Q2

REPORT INFORMATION
  Report Type: 
  Country: None (occurrence: None)
  Receive Date: 20120605
  Receipt Date: 20120605
  Transmission Date: 20120825
  Serious: Yes (Life-Threatening, Hospitalization)
  Sender: FDA-Public Use
  Company Number: None

PATIENT
  Age: 62 Year
  Sex: Male
  Weight: 77.1115 kg

DRUGS (2)
  1. SUPREP BOWEL PREP KIT [Suspect]
     Indication: COLONOSCOPY
     Dosage: 177  ML ONCE ORAL; 177 ML ONCE ORAL
     Route: 048
     Dates: start: 20120322
  2. SUPREP BOWEL PREP KIT [Suspect]
     Indication: COLONOSCOPY
     Dosage: 177  ML ONCE ORAL; 177 ML ONCE ORAL
     Route: 048
     Dates: start: 20120323

REACTIONS (1)
  - LARGE INTESTINE PERFORATION [None]
